FAERS Safety Report 10039439 (Version 2)
Quarter: 2014Q2

REPORT INFORMATION
  Report Type: Report from Study
  Country: CA (occurrence: CA)
  Receive Date: 20140326
  Receipt Date: 20140509
  Transmission Date: 20141212
  Serious: Yes (Other)
  Sender: FDA-Public Use
  Company Number: PHHY2014CA036682

PATIENT
  Sex: Female

DRUGS (8)
  1. ACLASTA [Suspect]
     Indication: OSTEOPOROSIS
     Dosage: UNK UKN, UNK
     Route: 042
     Dates: start: 20120427
  2. ACLASTA [Suspect]
     Dosage: UNK UKN, UNK
     Route: 042
     Dates: start: 20130529
  3. FUROSEMIDE [Concomitant]
     Dosage: 60 MG, QD
  4. VITAMIN D [Concomitant]
     Dosage: 1000 U, QD
  5. TRAMACET [Concomitant]
     Dosage: UNK UKN, BID
  6. TELMISARTAN [Concomitant]
     Dosage: 80 MG, QD
  7. SLOW-K [Concomitant]
     Dosage: UNK UKN, QD
  8. CALCIUM [Concomitant]
     Dosage: 550 MG, BID

REACTIONS (3)
  - Dementia Alzheimer^s type [Not Recovered/Not Resolved]
  - Concomitant disease aggravated [Not Recovered/Not Resolved]
  - Osteoporosis [Unknown]
